FAERS Safety Report 18358451 (Version 1)
Quarter: 2020Q4

REPORT INFORMATION
  Report Type: Spontaneous
  Country: US (occurrence: US)
  Receive Date: 20201008
  Receipt Date: 20201008
  Transmission Date: 20210114
  Serious: No
  Sender: FDA-Public Use
  Company Number: US-SUN PHARMACEUTICAL INDUSTRIES LTD-2020R1-252085

PATIENT
  Sex: Male

DRUGS (1)
  1. XELPROS [Suspect]
     Active Substance: LATANOPROST
     Indication: PRODUCT USED FOR UNKNOWN INDICATION
     Dosage: ONE DROP EACH EYE, NIGHTLY
     Route: 065

REACTIONS (9)
  - Periorbital swelling [Unknown]
  - Intraocular pressure increased [Recovered/Resolved]
  - Periorbital pain [Unknown]
  - Fatigue [Unknown]
  - Eye irritation [Recovered/Resolved]
  - Product quality issue [Unknown]
  - Insomnia [Recovered/Resolved]
  - Headache [Unknown]
  - Pain in extremity [Unknown]
